FAERS Safety Report 9392656 (Version 1)
Quarter: 2013Q3

REPORT INFORMATION
  Report Type: Spontaneous
  Country: IT (occurrence: IT)
  Receive Date: 20130710
  Receipt Date: 20130710
  Transmission Date: 20140515
  Serious: Yes (Other)
  Sender: FDA-Public Use
  Company Number: PHHY2013IT069566

PATIENT
  Age: 79 Year
  Sex: Male
  Weight: 67 kg

DRUGS (5)
  1. POTASSIUM CHLORIDE [Suspect]
     Dosage: 4800 MG, UNK
     Route: 048
  2. SPIRONOLACTONE [Suspect]
     Dosage: 200 MG, UNK
  3. TAMSULOSIN [Concomitant]
  4. CHOLECALCIFEROL [Concomitant]
  5. MAGNESIUM [Concomitant]

REACTIONS (4)
  - Gynaecomastia [Recovered/Resolved]
  - Pain [Recovered/Resolved]
  - Gastrointestinal disorder [Recovered/Resolved]
  - Hypokalaemia [Recovered/Resolved]
